FAERS Safety Report 5492965-4 (Version None)
Quarter: 2007Q4

REPORT INFORMATION
  Report Type: 
  Country: None (occurrence: None)
  Receive Date: 20071023
  Receipt Date: 20071012
  Transmission Date: 20080405
  Serious: Yes (Hospitalization)
  Sender: FDA-Public Use
  Company Number: IE-NOVOPROD-268438

PATIENT
  Sex: Female
  Weight: 85.7 kg

DRUGS (5)
  1. LEVEMIR [Suspect]
     Dosage: 28 IU, QD
     Route: 058
     Dates: start: 20051020
  2. PROZAC [Concomitant]
     Dosage: 60 MG, QD
     Route: 048
     Dates: start: 20041223
  3. ASPIRINE                           /00002701/ [Concomitant]
     Dosage: 75 MG, QD
     Route: 048
     Dates: start: 20020211
  4. TRITACE [Concomitant]
     Dosage: 2.5 MG, QD
     Route: 048
     Dates: start: 20070801
  5. TYLEX                              /00020001/ [Concomitant]
     Dosage: 2 TAB, QD
     Route: 048
     Dates: start: 20070921

REACTIONS (1)
  - ROAD TRAFFIC ACCIDENT [None]
